FAERS Safety Report 5938535-2 (Version None)
Quarter: 2008Q4

REPORT INFORMATION
  Report Type: 
  Country: None (occurrence: None)
  Receive Date: 20081103
  Receipt Date: 20081023
  Transmission Date: 20090506
  Serious: Yes (Other)
  Sender: FDA-Public Use
  Company Number: PHEH2008US09535

PATIENT
  Sex: Female

DRUGS (1)
  1. RECLAST [Suspect]
     Dosage: UNK
     Dates: start: 20080717

REACTIONS (5)
  - HEADACHE [None]
  - NASAL DISCOMFORT [None]
  - NERVOUS SYSTEM DISORDER [None]
  - PAIN IN JAW [None]
  - SWELLING [None]
